FAERS Safety Report 6816802-8 (Version None)
Quarter: 2010Q3

REPORT INFORMATION
  Report Type: 
  Country: None (occurrence: None)
  Receive Date: 20100706
  Receipt Date: 20100622
  Transmission Date: 20110219
  Serious: Yes (Hospitalization, Other)
  Sender: FDA-Public Use
  Company Number: US-ELI_LILLY_AND_COMPANY-US201006006547

PATIENT
  Sex: Female

DRUGS (12)
  1. FORTEO [Suspect]
     Indication: OSTEOPOROSIS
     Dosage: 20 UG, DAILY (1/D)
  2. LEVOXYL [Concomitant]
     Dosage: 0.075 MG, DAILY (1/D)
  3. OMEPRAZOLE [Concomitant]
     Dosage: 20 MG, 2/D
  4. FEXOFENADINE [Concomitant]
     Dosage: 180 MG, DAILY (1/D)
  5. CENTRUM /00554501/ [Concomitant]
     Dosage: 1 D/F, DAILY (1/D)
     Route: 048
  6. SERTRALINE HCL [Concomitant]
     Dosage: 50 MG, DAILY (1/D)
  7. OSCAL D /06435501/ [Concomitant]
     Dosage: 1 D/F, DAILY (1/D)
  8. VITAMIN D3 [Concomitant]
     Dosage: 1000 IU, DAILY (1/D)
  9. FERROUS SULFATE [Concomitant]
     Dosage: 85 MG, DAILY (1/D)
  10. NAMENDA [Concomitant]
     Dosage: 5 MG, DAILY (1/D)
  11. SIMVASTATIN [Concomitant]
     Dosage: 80 MG, EACH EVENING
  12. DICLOFENAC SODIUM [Concomitant]
     Dosage: 75 MG, 2/D

REACTIONS (5)
  - FALL [None]
  - FATIGUE [None]
  - HIP FRACTURE [None]
  - OEDEMA PERIPHERAL [None]
  - RENAL FAILURE [None]
